FAERS Safety Report 13617168 (Version 2)
Quarter: 2017Q2

REPORT INFORMATION
  Report Type: Spontaneous
  Country: US (occurrence: US)
  Receive Date: 20170606
  Receipt Date: 20170606
  Transmission Date: 20170830
  Serious: No
  Sender: FDA-Public Use
  Company Number: US-SA-2015SA149231

PATIENT
  Age: 82 Year
  Sex: Male
  Weight: 89 kg

DRUGS (3)
  1. SOLOSTAR [Concomitant]
     Active Substance: DEVICE
     Indication: TYPE 2 DIABETES MELLITUS
     Dates: start: 2015
  2. SOLOSTAR [Concomitant]
     Active Substance: DEVICE
     Indication: TYPE 2 DIABETES MELLITUS
  3. LANTUS SOLOSTAR [Suspect]
     Active Substance: INSULIN GLARGINE
     Indication: TYPE 2 DIABETES MELLITUS
     Route: 065
     Dates: start: 201603, end: 20170221

REACTIONS (5)
  - Blood glucose decreased [Recovering/Resolving]
  - Balance disorder [Recovering/Resolving]
  - Hunger [Recovering/Resolving]
  - Tremor [Recovering/Resolving]
  - Glycosylated haemoglobin increased [Unknown]
